FAERS Safety Report 7592530-9 (Version None)
Quarter: 2011Q2

REPORT INFORMATION
  Report Type: 
  Country: None (occurrence: None)
  Receive Date: 20110628
  Receipt Date: 20110623
  Transmission Date: 20111010
  Serious: Yes (Life-Threatening, Hospitalization)
  Sender: FDA-Public Use
  Company Number: 2011SP029392

PATIENT
  Age: 34 Year
  Sex: Female

DRUGS (2)
  1. IMPLANON [Suspect]
     Indication: CONTRACEPTION
     Dosage: 1 DF; 68 MG, ONCE,
     Dates: start: 20070101, end: 20100720
  2. IMPLANON [Suspect]
     Dates: start: 20100720, end: 20110514

REACTIONS (2)
  - MESENTERIC VEIN THROMBOSIS [None]
  - SMALL INTESTINE GANGRENE [None]
